FAERS Safety Report 10176761 (Version 2)
Quarter: 2014Q4

REPORT INFORMATION
  Report Type: Spontaneous
  Country: US (occurrence: US)
  Receive Date: 20140516
  Receipt Date: 20141127
  Transmission Date: 20150528
  Serious: Yes (Death)
  Sender: FDA-Public Use
  Company Number: US-BRISTOL-MYERS SQUIBB COMPANY-20728366

PATIENT
  Age: 63 Year
  Sex: Female
  Weight: 88.43 kg

DRUGS (16)
  1. JANUVIA [Suspect]
     Active Substance: SITAGLIPTIN PHOSPHATE
     Dates: start: 201201, end: 201301
  2. NITROGLYCERIN. [Concomitant]
     Active Substance: NITROGLYCERIN
  3. ROPINIROLE. [Concomitant]
     Active Substance: ROPINIROLE
  4. VICTOZA [Suspect]
     Active Substance: LIRAGLUTIDE
     Dates: start: 201302, end: 201303
  5. ALLOPURINOL. [Concomitant]
     Active Substance: ALLOPURINOL
  6. ZOFRAN [Concomitant]
     Active Substance: ONDANSETRON HYDROCHLORIDE
  7. PREDNISONE. [Concomitant]
     Active Substance: PREDNISONE
  8. CARAFATE [Concomitant]
     Active Substance: SUCRALFATE
  9. BYETTA [Suspect]
     Active Substance: EXENATIDE
     Dates: start: 200907, end: 200908
  10. DILTIAZEM HCL [Concomitant]
     Active Substance: DILTIAZEM HYDROCHLORIDE
  11. LISINOPRIL. [Concomitant]
     Active Substance: LISINOPRIL
  12. NOVOLOG [Concomitant]
     Active Substance: INSULIN ASPART
  13. COMBIVENT [Concomitant]
     Active Substance: ALBUTEROL SULFATE\IPRATROPIUM BROMIDE
  14. REGULAR INSULIN [Concomitant]
     Active Substance: INSULIN NOS
  15. COUMADIN [Concomitant]
     Active Substance: WARFARIN SODIUM
  16. METOPROLOL [Concomitant]
     Active Substance: METOPROLOL

REACTIONS (1)
  - Ductal adenocarcinoma of pancreas [Fatal]

NARRATIVE: CASE EVENT DATE: 20130513
